FAERS Safety Report 6932479-5 (Version None)
Quarter: 2010Q3

REPORT INFORMATION
  Report Type: 
  Country: None (occurrence: None)
  Receive Date: 20100819
  Receipt Date: 20100816
  Transmission Date: 20110219
  Serious: Yes (Other)
  Sender: FDA-Public Use
  Company Number: FR-MERCK-1008FRA00051

PATIENT
  Age: 65 Year
  Sex: Female

DRUGS (9)
  1. PRIMAXIN [Suspect]
     Indication: WOUND INFECTION
     Route: 042
     Dates: start: 20100712, end: 20100725
  2. CIPROFLOXACIN [Suspect]
     Indication: WOUND INFECTION
     Route: 041
     Dates: start: 20100720, end: 20100727
  3. ACETAZOLAMIDE [Suspect]
     Route: 042
     Dates: start: 20100719, end: 20100722
  4. ESOMEPRAZOLE MAGNESIUM [Suspect]
     Route: 065
  5. LINEZOLID [Suspect]
     Indication: WOUND INFECTION
     Route: 041
     Dates: start: 20100710, end: 20100723
  6. CELIPROLOL HYDROCHLORIDE [Concomitant]
     Route: 065
  7. LEVOTHYROXINE SODIUM [Concomitant]
     Route: 065
  8. ALTHIAZIDE AND SPIRONOLACTONE [Concomitant]
     Route: 065
  9. DIOSMIN [Concomitant]
     Route: 065

REACTIONS (2)
  - BLISTER [None]
  - RASH MACULO-PAPULAR [None]
